FAERS Safety Report 20663808 (Version 3)
Quarter: 2022Q2

REPORT INFORMATION
  Report Type: Report from Study
  Country: FR (occurrence: FR)
  Receive Date: 20220401
  Receipt Date: 20220628
  Transmission Date: 20220720
  Serious: Yes (Death, Life-Threatening, Hospitalization)
  Sender: FDA-Public Use
  Company Number: FR-GLAXOSMITHKLINE-FR2022EME056954

PATIENT

DRUGS (1)
  1. BELANTAMAB MAFODOTIN [Suspect]
     Active Substance: BELANTAMAB MAFODOTIN
     Indication: Plasma cell myeloma
     Dosage: 180 MG (2.5 MG/KG), EVERY THREE WEEK
     Route: 042
     Dates: start: 20210429, end: 20210520

REACTIONS (3)
  - Motor dysfunction [Fatal]
  - Dry eye [Unknown]
  - Corneal epithelial microcysts [Unknown]

NARRATIVE: CASE EVENT DATE: 20210520
